FAERS Safety Report 6060994-8 (Version None)
Quarter: 2009Q1

REPORT INFORMATION
  Report Type: 
  Country: None (occurrence: None)
  Receive Date: 20090202
  Receipt Date: 20090121
  Transmission Date: 20090719
  Serious: Yes (Death)
  Sender: FDA-Public Use
  Company Number: US-JNJFOC-20090105857

PATIENT
  Sex: Male
  Weight: 69.85 kg

DRUGS (6)
  1. FENTANYL-75 [Suspect]
     Indication: PAIN
     Route: 065
  2. MORPHINE [Suspect]
     Indication: DRUG USE FOR UNKNOWN INDICATION
     Route: 065
  3. HYDROCODONE [Suspect]
     Indication: PAIN
     Route: 065
  4. VALIUM [Suspect]
     Indication: DRUG USE FOR UNKNOWN INDICATION
     Route: 065
  5. BENZODIAZEPINES [Concomitant]
     Route: 065
  6. TRICYCLICS [Concomitant]
     Route: 065

REACTIONS (3)
  - DRUG LEVEL INCREASED [None]
  - DRUG TOXICITY [None]
  - MULTIPLE INJURIES [None]
